FAERS Safety Report 15242898 (Version 1)
Quarter: 2018Q3

REPORT INFORMATION
  Report Type: Spontaneous
  Country: US (occurrence: US)
  Receive Date: 20180806
  Receipt Date: 20180806
  Transmission Date: 20181010
  Serious: Yes (Other)
  Sender: FDA-Public Use
  Company Number: US-ASTELLAS-2018US034686

PATIENT
  Age: 16 Year
  Sex: Male

DRUGS (8)
  1. FLUDARABINE [Concomitant]
     Active Substance: FLUDARABINE PHOSPHATE
     Indication: STEM CELL TRANSPLANT
     Dosage: 40 MG/M2, UNKNOWN FREQ. (DAYS ?5, ?4, ?3)
     Route: 065
  2. HYDROCORTISONE. [Concomitant]
     Active Substance: HYDROCORTISONE
     Indication: STEM CELL TRANSPLANT
     Route: 065
  3. ANTITHYMOCYTE IMMUNOGLOBULIN [Concomitant]
     Active Substance: THYMOCYTE IMMUNE GLOBULIN NOS
     Indication: STEM CELL TRANSPLANT
     Dosage: 1.5 MG/KG, UNKNOWN FREQ.(DAYS ?3,?2,?1)
     Route: 065
  4. TACROLIMUS. [Suspect]
     Active Substance: TACROLIMUS
     Indication: PROPHYLAXIS AGAINST GRAFT VERSUS HOST DISEASE
     Dosage: 0.03 MG/KG, UNKNOWN FREQ.(BEGINNING DAY ?1)
     Route: 042
  5. DEXTRAN [Suspect]
     Active Substance: DEXTRAN
     Indication: STEM CELL TRANSPLANT
     Route: 065
  6. DIPHENHYDRAMINE. [Concomitant]
     Active Substance: DIPHENHYDRAMINE
     Indication: STEM CELL TRANSPLANT
     Route: 065
  7. METHOTREXATE. [Concomitant]
     Active Substance: METHOTREXATE
     Indication: PROPHYLAXIS AGAINST GRAFT VERSUS HOST DISEASE
     Dosage: 5 MG/M2, UNKNOWN FREQ.(DAYS +1,+3,+6,+11)
     Route: 065
  8. BUSULFAN. [Concomitant]
     Active Substance: BUSULFAN
     Indication: STEM CELL TRANSPLANT
     Dosage: 3.2 MG/KG, UNKNOWN FREQ. (DAYS ?5, ?4, ?3),
     Route: 065

REACTIONS (5)
  - Tachycardia [Unknown]
  - Abdominal pain [Unknown]
  - Product use in unapproved indication [Unknown]
  - Urticaria [Unknown]
  - Anaphylactic reaction [Recovered/Resolved]
